FAERS Safety Report 20047165 (Version 2)
Quarter: 2021Q4

REPORT INFORMATION
  Report Type: Spontaneous
  Country: CH (occurrence: CH)
  Receive Date: 20211109
  Receipt Date: 20211130
  Transmission Date: 20220303
  Serious: Yes (Hospitalization)
  Sender: FDA-Public Use
  Company Number: CH-ABBVIE-21K-151-4147979-00

PATIENT
  Sex: Female

DRUGS (1)
  1. HUMIRA [Suspect]
     Active Substance: ADALIMUMAB
     Indication: Rheumatoid arthritis
     Route: 058
     Dates: start: 20210612, end: 20210626

REACTIONS (12)
  - Spinal column injury [Unknown]
  - Fall [Recovered/Resolved]
  - Gastrointestinal disorder [Recovered/Resolved]
  - Hypoaesthesia [Unknown]
  - Paraesthesia [Unknown]
  - Myalgia [Unknown]
  - Pain [Unknown]
  - Neuralgia [Unknown]
  - Headache [Unknown]
  - Diarrhoea [Unknown]
  - Oral herpes [Unknown]
  - Herpes virus infection [Unknown]

NARRATIVE: CASE EVENT DATE: 20210101
